FAERS Safety Report 7937348-X (Version None)
Quarter: 2011Q4

REPORT INFORMATION
  Report Type: 
  Country: None (occurrence: None)
  Receive Date: 20111123
  Receipt Date: 20111110
  Transmission Date: 20120403
  Serious: Yes (Hospitalization)
  Sender: FDA-Public Use
  Company Number: SE-CELGENEUS-150-21880-11101298

PATIENT
  Sex: Female

DRUGS (20)
  1. ATENOLOL [Concomitant]
     Dosage: 25 MILLIGRAM
     Route: 065
     Dates: start: 20070906
  2. MORPHINE [Concomitant]
     Route: 065
     Dates: start: 20100722
  3. REVLIMID [Suspect]
     Dosage: 25 MILLIGRAM
     Route: 048
     Dates: start: 20110725
  4. BACTRIM [Concomitant]
     Dosage: 2 TABLET
     Route: 065
     Dates: start: 20110405
  5. NOVORAPID [Concomitant]
     Dosage: 4500 IU (INTERNATIONAL UNIT)
     Route: 065
     Dates: start: 20110209
  6. REVLIMID [Suspect]
     Indication: MULTIPLE MYELOMA
     Dosage: 25 MILLIGRAM
     Route: 048
     Dates: start: 20110210
  7. ENALAPRIL MALEATE [Concomitant]
     Dosage: 20 MILLIGRAM
     Route: 065
     Dates: start: 20101013, end: 20111010
  8. DICLOFENAC SODIUM [Concomitant]
     Route: 065
     Dates: start: 20100722
  9. DEXAMETHASONE [Suspect]
     Indication: MULTIPLE MYELOMA
     Dosage: 40 MILLIGRAM
     Route: 048
     Dates: start: 20110725
  10. CALCIMAGON D3 [Concomitant]
     Dosage: 500 MILLIGRAM
     Route: 065
     Dates: start: 20110405
  11. FUROSEMIDE [Concomitant]
     Indication: HYPERKALAEMIA
     Dosage: 80 MILLIGRAM
     Route: 065
     Dates: start: 20101229
  12. DEXAMETHASONE [Suspect]
     Dosage: 20 MILLIGRAM
     Route: 048
     Dates: start: 20110919, end: 20111010
  13. REVLIMID [Suspect]
     Dosage: 15 MILLIGRAM
     Route: 048
     Dates: start: 20110919, end: 20111010
  14. AMLODIPINE [Concomitant]
     Dosage: 10 MILLIGRAM
     Route: 065
     Dates: start: 20090305
  15. INNOHEP [Concomitant]
     Dosage: 4500 IU (INTERNATIONAL UNIT)
     Route: 065
     Dates: start: 20110209
  16. REVLIMID [Suspect]
     Dosage: 15 MILLIGRAM
     Route: 048
     Dates: start: 20111101
  17. SPIRONOLACTONE [Concomitant]
     Dosage: 25 MILLIGRAM
     Route: 065
     Dates: start: 20110506, end: 20111010
  18. IMDUR [Concomitant]
     Dosage: 60 MILLIGRAM
     Route: 065
     Dates: start: 20070906
  19. NITROMEX [Concomitant]
     Route: 065
     Dates: start: 20090101
  20. FUROSEMIDE [Concomitant]
     Route: 041
     Dates: start: 20111011, end: 20111014

REACTIONS (7)
  - RENAL FAILURE [None]
  - HYPERKALAEMIA [None]
  - BLOOD PRESSURE INCREASED [None]
  - HAEMOGLOBIN DECREASED [None]
  - PLATELET COUNT INCREASED [None]
  - SWELLING [None]
  - PERIPHERAL SENSORY NEUROPATHY [None]
